FAERS Safety Report 10713634 (Version 2)
Quarter: 2015Q1

REPORT INFORMATION
  Report Type: Spontaneous
  Country: US (occurrence: US)
  Receive Date: 20150115
  Receipt Date: 20150323
  Transmission Date: 20150721
  Serious: Yes (Death, Hospitalization, Other)
  Sender: FDA-Public Use
  Company Number: US-BAYER-2015-005248

PATIENT
  Age: 74 Year
  Sex: Female
  Weight: 65.76 kg

DRUGS (31)
  1. COLECALCIFEROL [Concomitant]
     Active Substance: CHOLECALCIFEROL
  2. LIPITOR [Concomitant]
     Active Substance: ATORVASTATIN CALCIUM
     Dosage: 1 DF, QD
  3. DIGOXIN. [Concomitant]
     Active Substance: DIGOXIN
     Dosage: 1 DF, QD
  4. HYDRALAZINE HCL [Concomitant]
     Active Substance: HYDRALAZINE HYDROCHLORIDE
     Dosage: 1 DF, BID
  5. NITROGLYCERIN. [Concomitant]
     Active Substance: NITROGLYCERIN
     Dosage: 1 DF, PRN (UNDER THE TONGUE AND ALLOW TO DISSOLVE)
     Route: 060
  6. FLUTICASONE FUROATE [Concomitant]
     Active Substance: FLUTICASONE FUROATE
     Dosage: 1 PUFF IN EACH NOSTRIL, QD
     Route: 055
  7. CREON [PANCREATIN] [Concomitant]
     Dosage: 2 DF, TID
  8. CREON [PANCREATIN] [Concomitant]
     Dosage: 1 DF, PRN
  9. LACTOFERMENT [LACTOBACILLUS NOS] [Concomitant]
     Dosage: 1 DF, BID
  10. CITALOPRAM HYDROBROMIDE. [Concomitant]
     Active Substance: CITALOPRAM HYDROBROMIDE
     Dosage: 1 DF, QD
  11. CLONIDINE HYDROCHLORIDE. [Concomitant]
     Active Substance: CLONIDINE HYDROCHLORIDE
     Dosage: 1 DF, TID
  12. NORCO [Concomitant]
     Active Substance: ACETAMINOPHEN\HYDROCODONE BITARTRATE
     Dosage: 1 DF, EVERY 6 HRS
  13. ASPIRIN. [Concomitant]
     Active Substance: ASPIRIN
     Dosage: 1 DF, QD
     Route: 048
  14. METOPROLOL TARTRATE. [Concomitant]
     Active Substance: METOPROLOL TARTRATE
     Dosage: 1 DF, BID
  15. CIPROFLOXACIN. [Concomitant]
     Active Substance: CIPROFLOXACIN
     Dosage: 1 DF, BID
  16. LOMOTIL [Concomitant]
     Active Substance: ATROPINE SULFATE\DIPHENOXYLATE HYDROCHLORIDE
     Dosage: 1 DF, PRN (FOUR TIMES A DAY)
  17. MELATONIN [Concomitant]
     Active Substance: MELATONIN
     Dosage: 1 DF, HS WITH FOOD
  18. BETASERON [Suspect]
     Active Substance: INTERFERON BETA-1B
     Indication: MULTIPLE SCLEROSIS
     Dosage: 0.3 MG, QOD
     Route: 058
     Dates: start: 2001
  19. GABAPENTIN. [Concomitant]
     Active Substance: GABAPENTIN
     Dosage: 1 DF, HS
  20. BUMETANIDE. [Concomitant]
     Active Substance: BUMETANIDE
     Dosage: 1 DF, BID
  21. DETROL LA [Concomitant]
     Active Substance: TOLTERODINE TARTRATE
     Dosage: 1 DF, QD
  22. FERROUS SULFATE [Concomitant]
     Active Substance: FERROUS SULFATE\FERROUS SULFATE, DRIED
  23. NYSTATIN. [Concomitant]
     Active Substance: NYSTATIN
     Dosage: UNK, FOUR TIMES DAILY
  24. BACLOFEN. [Concomitant]
     Active Substance: BACLOFEN
     Dosage: 1 DF, TID WITH FOOD OR MILK
  25. PRIMIDONE. [Concomitant]
     Active Substance: PRIMIDONE
     Dosage: 1 DF, HS
  26. PRIMIDONE. [Concomitant]
     Active Substance: PRIMIDONE
     Dosage: 1 DF, UNK
  27. AMLODIPINE BESYLATE. [Concomitant]
     Active Substance: AMLODIPINE BESYLATE
     Dosage: 1 DF, BID
  28. VALIUM [Concomitant]
     Active Substance: DIAZEPAM
     Dosage: 1 DF, PRN (EVERY 6 HOURS)
  29. LOSARTAN POTASSIUM. [Concomitant]
     Active Substance: LOSARTAN POTASSIUM
     Dosage: 1 DF, QD
  30. PANTOPRAZOLE SODIUM [Concomitant]
     Active Substance: PANTOPRAZOLE SODIUM
     Dosage: 1 DF, BID
  31. ALBUTEROL. [Concomitant]
     Active Substance: ALBUTEROL
     Dosage: 90 MCG/ACT, UNK

REACTIONS (5)
  - Movement disorder [None]
  - Asterixis [None]
  - Cardiac failure [None]
  - Malaise [None]
  - Pneumonia [Fatal]
